FAERS Safety Report 19085619 (Version 1)
Quarter: 2021Q2

REPORT INFORMATION
  Report Type: Spontaneous
  Country: IT (occurrence: IT)
  Receive Date: 20210401
  Receipt Date: 20210401
  Transmission Date: 20210717
  Serious: Yes (Other)
  Sender: FDA-Public Use
  Company Number: IT-SUN PHARMACEUTICAL INDUSTRIES LTD-2021RR-288975

PATIENT
  Age: 47 Year
  Sex: Male

DRUGS (2)
  1. TEMOZOLOMIDE. [Suspect]
     Active Substance: TEMOZOLOMIDE
     Indication: PITUITARY TUMOUR
     Dosage: 150 MILLIGRAM/SQ. METER, DAILY, 1?5 EVERY 28 DAYS
     Route: 065
  2. TEMOZOLOMIDE. [Suspect]
     Active Substance: TEMOZOLOMIDE
     Dosage: 200 MILLIGRAM/SQ. METER, DAILY, 1?5 EVERY 28 DAYS
     Route: 065

REACTIONS (2)
  - Therapeutic product effect incomplete [Unknown]
  - Pituitary-dependent Cushing^s syndrome [Unknown]
